FAERS Safety Report 24197384 (Version 1)
Quarter: 2024Q3

REPORT INFORMATION
  Report Type: Spontaneous
  Country: US (occurrence: US)
  Receive Date: 20240810
  Receipt Date: 20240810
  Transmission Date: 20241017
  Serious: No
  Sender: SANOFI AVENTIS
  Company Number: US-SA-SAC20240807001437

PATIENT
  Age: 36 Year
  Sex: Male

DRUGS (2)
  1. ELOCTATE [Suspect]
     Active Substance: EFMOROCTOCOG ALFA
     Indication: Factor VIII deficiency
     Dosage: 4500 U, PRN (AS NECESSARY)
     Route: 042
     Dates: start: 202406
  2. ELOCTATE [Suspect]
     Active Substance: EFMOROCTOCOG ALFA
     Indication: Factor VIII deficiency
     Dosage: 4500 U, PRN (AS NECESSARY)
     Route: 042
     Dates: start: 202406

REACTIONS (1)
  - Face injury [Unknown]

NARRATIVE: CASE EVENT DATE: 20240101
